FAERS Safety Report 8423182-3 (Version None)
Quarter: 2012Q2

REPORT INFORMATION
  Report Type: 
  Country: None (occurrence: None)
  Receive Date: 20120608
  Receipt Date: 20120606
  Transmission Date: 20120825
  Serious: No
  Sender: FDA-Public Use
  Company Number: US-PFIZER INC-2012137199

PATIENT
  Age: 71 Year
  Sex: Male
  Weight: 73.923 kg

DRUGS (11)
  1. METOPROLOL [Concomitant]
     Indication: HYPERTENSION
  2. AMLODIPINE [Concomitant]
     Indication: HYPERTENSION
     Dosage: 5 MG, 1X/DAY
  3. MORPHINE [Concomitant]
     Indication: PAIN
     Dosage: 120 MG, 2X/DAY
  4. RANITIDINE [Concomitant]
     Indication: DYSPEPSIA
  5. METOPROLOL [Concomitant]
     Indication: CARDIAC DISORDER
     Dosage: 25 MG, 2X/DAY
  6. GABAPENTIN [Concomitant]
     Indication: PAIN
     Dosage: 300 MG, 3X/DAY
  7. CHANTIX [Suspect]
     Indication: SMOKING CESSATION THERAPY
     Dosage: 0.5 MG, 1X/DAY
     Route: 048
     Dates: start: 20120301, end: 20120501
  8. ZOPICLONE [Concomitant]
     Indication: SLEEP DISORDER
     Dosage: 3 MG, 1X/DAY
  9. ROPINIROLE [Concomitant]
     Indication: RESTLESS LEGS SYNDROME
     Dosage: 0.25 MG, 1X/DAY
  10. SIMVASTATIN [Concomitant]
     Indication: BLOOD CHOLESTEROL ABNORMAL
     Dosage: 40 MG, 1X/DAY
  11. RANITIDINE [Concomitant]
     Indication: GASTROOESOPHAGEAL REFLUX DISEASE
     Dosage: 150 MG, 2X/DAY

REACTIONS (1)
  - PSYCHIATRIC SYMPTOM [None]
